FAERS Safety Report 7810749-6 (Version None)
Quarter: 2011Q4

REPORT INFORMATION
  Report Type: 
  Country: None (occurrence: None)
  Receive Date: 20111006
  Receipt Date: 20110921
  Transmission Date: 20120403
  Serious: Yes (Other)
  Sender: FDA-Public Use
  Company Number: 2011P1007820

PATIENT
  Age: 97 Year
  Sex: Female
  Weight: 63.5036 kg

DRUGS (4)
  1. FENTANYL-75 [Suspect]
     Indication: SPINAL COMPRESSION FRACTURE
     Dosage: 1 PATCH;Q72H;
     Dates: start: 20070101
  2. FENTANYL-75 [Suspect]
     Indication: PAIN
     Dosage: 1 PATCH;Q72H;
     Dates: start: 20070101
  3. KINDS OF EYE DROPS (UNSPECIFIED) [Concomitant]
  4. CORRECTOL [Concomitant]

REACTIONS (10)
  - DRUG WITHDRAWAL SYNDROME [None]
  - PRODUCT QUALITY ISSUE [None]
  - ASTHENIA [None]
  - URINARY TRACT INFECTION [None]
  - AGITATION [None]
  - FEELING ABNORMAL [None]
  - BLOOD PRESSURE INCREASED [None]
  - GAIT DISTURBANCE [None]
  - CONTUSION [None]
  - FEELING JITTERY [None]
